FAERS Safety Report 25684670 (Version 3)
Quarter: 2025Q3

REPORT INFORMATION
  Report Type: Report from Study
  Country: US (occurrence: US)
  Receive Date: 20250815
  Receipt Date: 20250919
  Transmission Date: 20251020
  Serious: Yes (Hospitalization, Disabling, Other)
  Sender: GILEAD
  Company Number: US-GILEAD-2025-0724386

PATIENT
  Age: 55 Year
  Sex: Female

DRUGS (1)
  1. SELADELPAR [Suspect]
     Active Substance: SELADELPAR
     Indication: Primary biliary cholangitis
     Dosage: 10MG PO DAILY
     Route: 048
     Dates: start: 20240903, end: 20250828

REACTIONS (5)
  - Femur fracture [Recovered/Resolved]
  - Thrombosis [Unknown]
  - Cerebral infarction [Unknown]
  - Cerebrovascular accident [Not Recovered/Not Resolved]
  - Pulmonary thrombosis [Recovered/Resolved]

NARRATIVE: CASE EVENT DATE: 20250712
